FAERS Safety Report 7834062-6 (Version None)
Quarter: 2011Q4

REPORT INFORMATION
  Report Type: 
  Country: None (occurrence: None)
  Receive Date: 20111024
  Receipt Date: 20111024
  Transmission Date: 20120403
  Serious: Yes (Life-Threatening, Hospitalization, Disabling, Other)
  Sender: FDA-Public Use
  Company Number: None

PATIENT
  Age: 33 Year
  Sex: Female
  Weight: 86.182 kg

DRUGS (1)
  1. CITRA NATAL 90 DHA PRENATAL VITAMINS [Suspect]

REACTIONS (2)
  - THROMBOSIS [None]
  - MATERNAL EXPOSURE DURING PREGNANCY [None]
